FAERS Safety Report 4954155-0 (Version None)
Quarter: 2006Q1

REPORT INFORMATION
  Report Type: 
  Country: None (occurrence: None)
  Receive Date: 20060327
  Receipt Date: 20060322
  Transmission Date: 20060701
  Serious: Yes (Other)
  Sender: FDA-Public Use
  Company Number: JP-AVENTIS-200610920JP

PATIENT
  Age: 65 Year
  Sex: Male

DRUGS (16)
  1. LASIX [Suspect]
     Route: 048
  2. MYSLEE [Concomitant]
  3. AIROMIR [Concomitant]
  4. DOMPERIN [Concomitant]
  5. AMLODIN [Concomitant]
  6. PAXIL [Concomitant]
  7. K SUPPLY [Concomitant]
  8. FULPEN A [Concomitant]
  9. CRAVIT [Concomitant]
  10. HIROSUTAS R [Concomitant]
  11. ETICALM [Concomitant]
  12. ANANGI [Concomitant]
  13. EPAND [Concomitant]
  14. DANAZOL [Concomitant]
  15. HALCION [Concomitant]
  16. BIBITTOACE [Concomitant]

REACTIONS (1)
  - RHABDOMYOLYSIS [None]
